FAERS Safety Report 11119101 (Version 1)
Quarter: 2015Q2

REPORT INFORMATION
  Report Type: Spontaneous
  Country: US (occurrence: None)
  Receive Date: 20150515
  Receipt Date: 20150515
  Transmission Date: 20150821
  Serious: Yes (Other)
  Sender: FDA-Public Use
  Company Number: None

PATIENT
  Age: 72 Year
  Sex: Male
  Weight: 85 kg

DRUGS (1)
  1. AMLODIPINE-VALSARTAN [Suspect]
     Active Substance: AMLODIPINE\VALSARTAN
     Indication: ADVERSE DRUG REACTION
     Route: 048
     Dates: start: 201504

REACTIONS (2)
  - Drug intolerance [None]
  - Fatigue [None]

NARRATIVE: CASE EVENT DATE: 201504
